FAERS Safety Report 4582429-4 (Version None)
Quarter: 2005Q1

REPORT INFORMATION
  Report Type: 
  Country: None (occurrence: None)
  Receive Date: 20050127
  Receipt Date: 20040923
  Transmission Date: 20050727
  Serious: No
  Sender: FDA-Public Use
  Company Number: USA040979040

PATIENT
  Age: 14 Year
  Sex: Male

DRUGS (2)
  1. SYMBYAX [Suspect]
  2. STRATTERA [Suspect]

REACTIONS (1)
  - PSYCHOTIC DISORDER [None]
